FAERS Safety Report 5635585-0 (Version None)
Quarter: 2008Q1

REPORT INFORMATION
  Report Type: 
  Country: None (occurrence: None)
  Receive Date: 20080222
  Receipt Date: 20080214
  Transmission Date: 20080703
  Serious: Yes (Hospitalization)
  Sender: FDA-Public Use
  Company Number: JP-PFIZER INC-2008015395

PATIENT
  Age: 54 Year
  Sex: Female

DRUGS (3)
  1. LIPITOR [Suspect]
     Indication: HYPERCHOLESTEROLAEMIA
     Route: 048
     Dates: start: 20080129, end: 20080212
  2. MECOBALAMIN [Concomitant]
     Route: 042
     Dates: start: 20080111, end: 20080124
  3. MECOBALAMIN [Concomitant]
     Route: 048
     Dates: start: 20080125

REACTIONS (3)
  - CHILLS [None]
  - FLUSHING [None]
  - TREMOR [None]
